FAERS Safety Report 8051451-8 (Version None)
Quarter: 2012Q1

REPORT INFORMATION
  Report Type: 
  Country: None (occurrence: None)
  Receive Date: 20120117
  Receipt Date: 20120109
  Transmission Date: 20120608
  Serious: Yes (Hospitalization)
  Sender: FDA-Public Use
  Company Number: JP-ROCHE-649106

PATIENT
  Sex: Female

DRUGS (17)
  1. PNEUMOVAX 23 [Concomitant]
     Indication: PROPHYLAXIS
     Dosage: PNEUMOVAX NP
     Route: 058
     Dates: start: 20090110, end: 20090110
  2. CRESTOR [Concomitant]
     Route: 048
     Dates: start: 20110708, end: 20111013
  3. OPALMON [Concomitant]
     Route: 048
     Dates: start: 20090605, end: 20111013
  4. BUP-4 [Concomitant]
     Route: 048
     Dates: start: 20090904
  5. PREDNISOLONE [Concomitant]
     Dosage: DOSE FORM: PERORAL AGENT
     Route: 048
  6. EVOXAC [Concomitant]
     Indication: RHEUMATOID ARTHRITIS
     Route: 048
     Dates: start: 20081107, end: 20090316
  7. AZULFIDINE [Concomitant]
     Indication: RHEUMATOID ARTHRITIS
     Dosage: DOSE FORM: ENTERIC COATING DRUG
     Route: 048
  8. PREDNISOLONE [Concomitant]
     Dosage: DOSE FORM: PERORAL AGENT
     Route: 048
     Dates: start: 20071215, end: 20080125
  9. DEXTROMETHORPHAN HYDROBROMIDE [Concomitant]
     Route: 048
     Dates: start: 20110708, end: 20111013
  10. PREDNISOLONE [Concomitant]
     Indication: RHEUMATOID ARTHRITIS
     Dosage: DOSE FORM: PERORAL AGENT
     Route: 048
     Dates: start: 20070718, end: 20071214
  11. ACTEMRA [Suspect]
     Indication: RHEUMATOID ARTHRITIS
     Route: 041
     Dates: start: 20081107, end: 20110101
  12. ANETHOLTRITHION [Concomitant]
     Dosage: DRUG NAME: FELVITEN
     Route: 048
  13. FAMOTIDINE [Concomitant]
     Indication: PROPHYLAXIS
     Route: 048
     Dates: start: 20081107, end: 20090316
  14. ALENDRONATE SODIUM [Concomitant]
     Route: 048
  15. ACTEMRA [Suspect]
     Route: 041
  16. LEVOTHYROXINE SODIUM [Concomitant]
     Indication: HYPOTHYROIDISM
     Route: 048
  17. VOLTAREN [Concomitant]
     Indication: RHEUMATOID ARTHRITIS
     Dosage: DOSE FORM: PERORAL AGENT
     Route: 048

REACTIONS (3)
  - ILEUS [None]
  - WHITE BLOOD CELL COUNT DECREASED [None]
  - THROMBOCYTOPENIA [None]
